FAERS Safety Report 18982578 (Version 2)
Quarter: 2021Q2

REPORT INFORMATION
  Report Type: Spontaneous
  Country: DE (occurrence: DE)
  Receive Date: 20210308
  Receipt Date: 20210520
  Transmission Date: 20210717
  Serious: Yes (Other)
  Sender: FDA-Public Use
  Company Number: DE-JNJFOC-20210312568

PATIENT
  Age: 63 Year
  Sex: Male
  Weight: 92 kg

DRUGS (1)
  1. VENTAVIS [Suspect]
     Active Substance: ILOPROST
     Indication: PULMONARY ARTERIAL HYPERTENSION
     Dosage: 6 TO 9 TIMES PER DAY AS NEEDED
     Route: 055

REACTIONS (11)
  - Syncope [Recovered/Resolved]
  - Dyspnoea [Unknown]
  - Extrasystoles [Recovered/Resolved]
  - Chest discomfort [Unknown]
  - Hyperhidrosis [Unknown]
  - Muscle spasms [Recovered/Resolved]
  - Palpitations [Unknown]
  - Headache [Recovered/Resolved]
  - Sleep disorder [Recovered/Resolved]
  - Presyncope [Unknown]
  - Arrhythmia [Recovered/Resolved]

NARRATIVE: CASE EVENT DATE: 20210227
